FAERS Safety Report 11896019 (Version 2)
Quarter: 2016Q1

REPORT INFORMATION
  Report Type: Spontaneous
  Country: CA (occurrence: CA)
  Receive Date: 20160107
  Receipt Date: 20160108
  Transmission Date: 20160526
  Serious: Yes (Other)
  Sender: FDA-Public Use
  Company Number: CA-SA-2015SA218598

PATIENT
  Sex: Female

DRUGS (2)
  1. SOLOSTAR [Concomitant]
     Active Substance: DEVICE
  2. LANTUS SOLOSTAR [Suspect]
     Active Substance: INSULIN GLARGINE
     Dosage: SPLITS THE DOSE INTO 80 UNITS AND 10 UNITS: TOTAL DOSE 90 UNITS
     Route: 058

REACTIONS (2)
  - Hospitalisation [Unknown]
  - Drug administration error [Unknown]

NARRATIVE: CASE EVENT DATE: 20151029
